FAERS Safety Report 4320613-5 (Version None)
Quarter: 2004Q1

REPORT INFORMATION
  Report Type: 
  Country: None (occurrence: None)
  Receive Date: 20040319
  Receipt Date: 20040319
  Transmission Date: 20041129
  Serious: No
  Sender: FDA-Public Use
  Company Number: None

PATIENT
  Age: 27 Year
  Sex: Female

DRUGS (4)
  1. ABILIFY [Suspect]
     Indication: POST-TRAUMATIC STRESS DISORDER
     Dosage: 5 MG PO Q DAY [1ST DOSE]
     Route: 048
     Dates: start: 20031129
  2. ABILIFY [Suspect]
     Indication: SELF INJURIOUS BEHAVIOUR
     Dosage: 5 MG PO Q DAY [1ST DOSE]
     Route: 048
     Dates: start: 20031129
  3. ZYPREXA [Concomitant]
  4. CLONIDINE [Concomitant]

REACTIONS (4)
  - DIZZINESS [None]
  - GRAND MAL CONVULSION [None]
  - NAUSEA [None]
  - TACHYCARDIA [None]
